FAERS Safety Report 5218725-7 (Version None)
Quarter: 2007Q1

REPORT INFORMATION
  Report Type: 
  Country: None (occurrence: None)
  Receive Date: 20070122
  Receipt Date: 20060110
  Transmission Date: 20070707
  Serious: Yes (Death)
  Sender: FDA-Public Use
  Company Number: 151643USA

PATIENT
  Age: 10 Year
  Sex: Male

DRUGS (5)
  1. VINCRISTINE SULFATE [Suspect]
     Indication: ASTROCYTOMA
     Dosage: 1.5 MG/M2 WEEKLY X8
  2. DACTINOMYCIN [Suspect]
     Dosage: 15 UG/KG/DAY X 5 DAYS
  3. PROCARBAZINE [Suspect]
     Dosage: 6 CYCLES AT 200MG/M2
  4. LOMUSTINE [Suspect]
     Dosage: 6 CYCLES 100MG/M2
  5. TIOGUANINE [Suspect]
     Dosage: 6 CYCLES 30MG/M2 X 12

REACTIONS (10)
  - CONVULSION [None]
  - FUNGAL SEPSIS [None]
  - INAPPROPRIATE ANTIDIURETIC HORMONE SECRETION [None]
  - MARROW HYPERPLASIA [None]
  - MYELODYSPLASTIC SYNDROME [None]
  - NEOPLASM PROGRESSION [None]
  - NEUROPATHY PERIPHERAL [None]
  - PANCYTOPENIA [None]
  - PYREXIA [None]
  - RESPIRATORY FAILURE [None]
